FAERS Safety Report 7020384-8 (Version None)
Quarter: 2010Q3

REPORT INFORMATION
  Report Type: 
  Country: None (occurrence: None)
  Receive Date: 20100927
  Receipt Date: 20100910
  Transmission Date: 20110219
  Serious: Yes (Other)
  Sender: FDA-Public Use
  Company Number: 8041941

PATIENT
  Sex: Male
  Weight: 1.8 kg

DRUGS (3)
  1. KEPPRA [Suspect]
     Indication: CONVULSION
     Dosage: (1500 MG, DOSE FREQ.: DAILY TRANSPLACENTAL)
     Route: 064
     Dates: end: 20080810
  2. PRENATAL VITAMINS [Concomitant]
  3. NIFEDIPINE [Concomitant]

REACTIONS (6)
  - GROSS MOTOR DELAY [None]
  - HYPERTONIA [None]
  - JOINT STIFFNESS [None]
  - MATERNAL DRUGS AFFECTING FOETUS [None]
  - PREMATURE BABY [None]
  - SPEECH DISORDER DEVELOPMENTAL [None]
